FAERS Safety Report 5083975-X (Version None)
Quarter: 2006Q3

REPORT INFORMATION
  Report Type: 
  Country: None (occurrence: None)
  Receive Date: 20060727
  Receipt Date: 20060430
  Transmission Date: 20061208
  Serious: Yes (Other)
  Sender: FDA-Public Use
  Company Number: 2006058725

PATIENT
  Age: 75 Year
  Sex: Female

DRUGS (12)
  1. LYRICA [Suspect]
     Indication: HERPES ZOSTER
     Dosage: 225 MG (75 MG, 3 IN 1 D), ORAL
     Route: 048
     Dates: start: 20060426
  2. HYDROCODONE BITARTRATE + ACETAMINOPHEN [Concomitant]
  3. CARBAMAZEPINE [Concomitant]
  4. PLAVIX [Concomitant]
  5. GLYBURIDE [Concomitant]
  6. AMITRIPTYLINE HCL [Concomitant]
  7. NIFEDICAL (NIFEDIPINE) [Concomitant]
  8. TRIAMTERENE (TRIAMTERENE) [Concomitant]
  9. METFORMIN HCL [Concomitant]
  10. PENTOXIFYLLINE [Concomitant]
  11. VALSARTAN [Concomitant]
  12. LOVASTATIN [Concomitant]

REACTIONS (1)
  - MUSCLE TWITCHING [None]
